FAERS Safety Report 6605128-3 (Version None)
Quarter: 2010Q1

REPORT INFORMATION
  Report Type: 
  Country: None (occurrence: None)
  Receive Date: 20100226
  Receipt Date: 20100217
  Transmission Date: 20100710
  Serious: No
  Sender: FDA-Public Use
  Company Number: US-B.I. PHARMACEUTICALS,INC./RIDGEFIELD-2010-BP-01987BP

PATIENT
  Sex: Male

DRUGS (4)
  1. COMBIVENT [Suspect]
     Indication: BRONCHITIS
     Dosage: 4 PUF
     Route: 055
     Dates: start: 20091201
  2. COMBIVENT [Suspect]
     Indication: PNEUMONIA
  3. ADVAIR DISKUS 100/50 [Suspect]
     Indication: BRONCHITIS
     Dates: start: 20091201
  4. ADVAIR DISKUS 100/50 [Suspect]
     Indication: PNEUMONIA

REACTIONS (1)
  - INSOMNIA [None]
